FAERS Safety Report 8373701-0 (Version None)
Quarter: 2012Q2

REPORT INFORMATION
  Report Type: 
  Country: None (occurrence: None)
  Receive Date: 20120521
  Receipt Date: 20120509
  Transmission Date: 20120825
  Serious: Yes (Hospitalization)
  Sender: FDA-Public Use
  Company Number: FR-ALLERGAN-1206949US

PATIENT
  Age: 72 Year
  Sex: Female

DRUGS (7)
  1. AMANTADINE HCL [Suspect]
     Indication: PARKINSON'S DISEASE
     Dosage: 3 DF, QD
     Route: 048
  2. CLONAZEPAM [Suspect]
     Indication: PRODUCT USED FOR UNKNOWN INDICATION
     Dosage: 3 GTT, QPM
     Route: 048
  3. MODOPAR [Suspect]
     Indication: PARKINSON'S DISEASE
     Dosage: 1 DF, QD
     Route: 048
  4. BICIRKAN [Suspect]
     Dosage: 2 DF, QD
     Route: 048
  5. TROSPIUM CHLORIDE [Suspect]
     Indication: PRODUCT USED FOR UNKNOWN INDICATION
     Dosage: 2 DF, QD
     Route: 048
  6. PARLODEL [Suspect]
     Indication: PARKINSON'S DISEASE
     Dosage: 6 DF, QD
     Route: 048
  7. STALEVO 100 [Suspect]
     Indication: PARKINSON'S DISEASE
     Dosage: 475 MG, QD

REACTIONS (2)
  - ATRIAL FIBRILLATION [None]
  - PULMONARY EMBOLISM [None]
